FAERS Safety Report 7918095-7 (Version None)
Quarter: 2011Q4

REPORT INFORMATION
  Report Type: 
  Country: None (occurrence: None)
  Receive Date: 20111116
  Receipt Date: 20110815
  Transmission Date: 20120403
  Serious: No
  Sender: FDA-Public Use
  Company Number: US-BAYER-2011-076863

PATIENT
  Sex: Female

DRUGS (2)
  1. ALEVE (CAPLET) [Suspect]
     Indication: MUSCLE SPASMS
     Route: 048
  2. IBUPROFEN (ADVIL) [Concomitant]

REACTIONS (1)
  - MUSCLE SPASMS [None]
